FAERS Safety Report 11279801 (Version 1)
Quarter: 2015Q3

REPORT INFORMATION
  Report Type: Spontaneous
  Country: CN (occurrence: CN)
  Receive Date: 20150717
  Receipt Date: 20150717
  Transmission Date: 20151125
  Serious: Yes (Hospitalization)
  Sender: FDA-Public Use
  Company Number: CN-PFIZER INC-2015232833

PATIENT
  Age: 85 Year
  Sex: Female

DRUGS (10)
  1. ISOSORBIDE DINITRATE. [Concomitant]
     Active Substance: ISOSORBIDE DINITRATE
     Indication: CORONARY ARTERY DILATATION
  2. HYDROCHLOROTHIAZIDE. [Concomitant]
     Active Substance: HYDROCHLOROTHIAZIDE
     Indication: HYPERTENSION
     Route: 048
  3. PANTOLOC /01263204/ [Concomitant]
     Active Substance: PANTOPRAZOLE SODIUM
     Indication: PROPHYLAXIS
  4. PANTOLOC /01263204/ [Concomitant]
     Active Substance: PANTOPRAZOLE SODIUM
     Indication: ANTACID THERAPY
  5. FASUDIL [Concomitant]
     Indication: CARDIOVASCULAR DISORDER
  6. NORVASC [Suspect]
     Active Substance: AMLODIPINE BESYLATE
     Indication: HYPERTENSION
     Dosage: 5 MG, 1X/DAY
     Route: 048
     Dates: start: 20140601, end: 20141219
  7. EDARAVONE [Concomitant]
     Active Substance: EDARAVONE
     Indication: SKIN DISORDER
  8. GLUTATHIONE [Concomitant]
     Active Substance: GLUTATHIONE
     Indication: PROPHYLAXIS
  9. MICARDIS [Concomitant]
     Active Substance: TELMISARTAN
     Indication: HYPERTENSION
     Dosage: 1 DF, 1X/DAY
     Route: 048
     Dates: start: 20140601, end: 20141214
  10. ATORVASTATIN [Concomitant]
     Active Substance: ATORVASTATIN
     Indication: ARTERIOSCLEROSIS

REACTIONS (10)
  - Rhinorrhoea [Unknown]
  - Atrioventricular block second degree [Unknown]
  - Supraventricular extrasystoles [Unknown]
  - Confusional state [Unknown]
  - Urinary incontinence [Unknown]
  - Atrioventricular block first degree [Unknown]
  - Syncope [Unknown]
  - Drooling [Unknown]
  - Orthostatic hypotension [Recovering/Resolving]
  - QRS axis abnormal [Unknown]

NARRATIVE: CASE EVENT DATE: 20141114
